FAERS Safety Report 8153621-7 (Version None)
Quarter: 2012Q1

REPORT INFORMATION
  Report Type: 
  Country: None (occurrence: None)
  Receive Date: 20120221
  Receipt Date: 20111119
  Transmission Date: 20120608
  Serious: Yes (Other)
  Sender: FDA-Public Use
  Company Number: CA-JNJFOC-20120109175

PATIENT
  Sex: Male
  Weight: 66 kg

DRUGS (3)
  1. REMICADE [Suspect]
     Indication: ANKYLOSING SPONDYLITIS
     Dosage: 50TH INFUSION
     Route: 042
     Dates: start: 20111005
  2. REMICADE [Suspect]
     Route: 042
     Dates: start: 20050929
  3. REMICADE [Suspect]
     Dosage: 51ST INFUSION.
     Route: 042
     Dates: start: 20111114

REACTIONS (1)
  - MENIERE'S DISEASE [None]
